FAERS Safety Report 10188275 (Version 1)
Quarter: 2014Q2

REPORT INFORMATION
  Report Type: Spontaneous
  Country: US (occurrence: None)
  Receive Date: 20140521
  Receipt Date: 20140521
  Transmission Date: 20141212
  Serious: No
  Sender: FDA-Public Use
  Company Number: None

PATIENT
  Age: 55 Year
  Sex: Male
  Weight: 104.5 kg

DRUGS (1)
  1. FENTANYL [Suspect]
     Dosage: 100 MCG, ONCE, IV
     Route: 042
     Dates: start: 20140320, end: 20140320

REACTIONS (1)
  - Muscle spasms [None]
